FAERS Safety Report 7075667-2 (Version None)
Quarter: 2010Q4

REPORT INFORMATION
  Report Type: 
  Country: None (occurrence: None)
  Receive Date: 20101030
  Receipt Date: 20101029
  Transmission Date: 20110411
  Serious: Yes (Hospitalization, Other)
  Sender: FDA-Public Use
  Company Number: US-ABBOTT-10P-163-0679499-00

PATIENT
  Age: 61 Year
  Sex: Female

DRUGS (10)
  1. HUMIRA [Suspect]
     Indication: RHEUMATOID ARTHRITIS
     Dates: start: 20100701, end: 20100930
  2. METHOTREXATE [Suspect]
     Indication: RHEUMATOID ARTHRITIS
  3. OXYGEN [Concomitant]
     Indication: OXYGEN SATURATION DECREASED
     Route: 045
  4. METFORMIN [Concomitant]
     Indication: DIABETES MELLITUS
  5. FOLIC ACID [Concomitant]
     Indication: PRODUCT USED FOR UNKNOWN INDICATION
  6. LEFLUNOMIDE [Concomitant]
     Indication: ARTHRITIS
  7. PRILOSEC [Concomitant]
     Indication: GASTROOESOPHAGEAL REFLUX DISEASE
  8. VITAMIN D [Concomitant]
     Indication: HYPOVITAMINOSIS
  9. SIMVASTATIN [Concomitant]
     Indication: BLOOD CHOLESTEROL INCREASED
  10. ROZEREM [Concomitant]
     Indication: INSOMNIA

REACTIONS (9)
  - BACK PAIN [None]
  - CHEST PAIN [None]
  - CORONARY ARTERY OCCLUSION [None]
  - LUNG DISORDER [None]
  - OXYGEN SATURATION DECREASED [None]
  - PNEUMONIA [None]
  - PRESYNCOPE [None]
  - SINUS HEADACHE [None]
  - SINUSITIS [None]
